FAERS Safety Report 15088130 (Version 1)
Quarter: 2018Q3

REPORT INFORMATION
  Report Type: Spontaneous
  Country: IE (occurrence: IE)
  Receive Date: 20180629
  Receipt Date: 20180629
  Transmission Date: 20181010
  Serious: Yes (Other)
  Sender: FDA-Public Use
  Company Number: IE-TEVA-2018-IE-916999

PATIENT
  Age: 49 Year
  Sex: Male

DRUGS (1)
  1. QUETIAPINE (G) [Suspect]
     Active Substance: QUETIAPINE
     Indication: DEPRESSION
     Route: 065

REACTIONS (1)
  - Depressed mood [Not Recovered/Not Resolved]
